FAERS Safety Report 7427511-9 (Version None)
Quarter: 2011Q2

REPORT INFORMATION
  Report Type: 
  Country: None (occurrence: None)
  Receive Date: 20110420
  Receipt Date: 20110325
  Transmission Date: 20111010
  Serious: No
  Sender: FDA-Public Use
  Company Number: US-B.I. PHARMACEUTICALS,INC./RIDGEFIELD-2011-BP-09302BP

PATIENT
  Sex: Female

DRUGS (11)
  1. GLUCOSAMINE [Concomitant]
     Indication: ARTHRITIS
     Dosage: 500 MG
     Route: 048
  2. CALCIUM [Concomitant]
     Indication: PROPHYLAXIS
     Dosage: 1800 MG
     Route: 048
  3. ASPIRIN [Concomitant]
     Indication: PROPHYLAXIS
     Dosage: 81 MG
     Route: 048
  4. VITAMIN D [Concomitant]
     Indication: PROPHYLAXIS
     Dosage: 2000 U
     Route: 048
  5. CENTRUM SILVER [Concomitant]
     Indication: PROPHYLAXIS
     Route: 048
  6. FOSAMAX [Concomitant]
     Indication: OSTEOPOROSIS
     Route: 048
  7. CARDIZEM [Concomitant]
     Indication: ATRIAL FIBRILLATION
     Dosage: 180 MG
     Route: 048
     Dates: start: 20110307
  8. ASCORBIC ACID [Concomitant]
     Indication: PROPHYLAXIS
     Dosage: 500 MG
     Route: 048
  9. SYNTHROID [Concomitant]
     Indication: HYPOTHYROIDISM
     Dosage: 50 MCG
     Route: 048
  10. LOVAZA [Concomitant]
     Indication: PROPHYLAXIS
     Dosage: 1000 MG
     Route: 048
  11. PRADAXA [Suspect]
     Indication: ATRIAL FIBRILLATION
     Dosage: 300 MG
     Route: 048
     Dates: start: 20110307, end: 20110322

REACTIONS (2)
  - RASH PRURITIC [None]
  - DIZZINESS [None]
